FAERS Safety Report 19815949 (Version 5)
Quarter: 2021Q4

REPORT INFORMATION
  Report Type: Spontaneous
  Country: DE (occurrence: DE)
  Receive Date: 20210909
  Receipt Date: 20211021
  Transmission Date: 20220303
  Serious: Yes (Hospitalization, Other)
  Sender: FDA-Public Use
  Company Number: DE-CHIESI-2021CHF04112

PATIENT
  Sex: Male

DRUGS (15)
  1. THEOPHYLLINE ANHYDROUS [Suspect]
     Active Substance: THEOPHYLLINE ANHYDROUS
     Indication: Suicide attempt
     Dosage: UNK
     Route: 065
     Dates: start: 20210814, end: 20210814
  2. THEOPHYLLINE ANHYDROUS [Suspect]
     Active Substance: THEOPHYLLINE ANHYDROUS
     Indication: Product used for unknown indication
  3. FOSTER [Suspect]
     Active Substance: BECLOMETHASONE\FORMOTEROL
     Indication: Suicide attempt
     Dosage: 4 DF, DAILY (2 DOSAGE FORM, BID)
     Route: 055
  4. FOSTER [Suspect]
     Active Substance: BECLOMETHASONE\FORMOTEROL
     Indication: Asthma
     Dosage: 4 DF, DAILY (2 DOSAGE FORM, BID)
     Route: 055
  5. FOSTER [Suspect]
     Active Substance: BECLOMETHASONE\FORMOTEROL
     Dosage: 4 DF, DAILY
     Route: 055
     Dates: start: 20210814, end: 20210814
  6. IBUPROFEN [Suspect]
     Active Substance: IBUPROFEN
     Indication: Suicide attempt
     Dosage: 8000 MG, DAILY
     Route: 048
     Dates: start: 20210814, end: 20210814
  7. IBUPROFEN [Suspect]
     Active Substance: IBUPROFEN
     Indication: Product used for unknown indication
  8. ALBUTEROL [Suspect]
     Active Substance: ALBUTEROL
     Indication: Suicide attempt
     Dosage: UNK
     Route: 065
     Dates: start: 20210814, end: 20210814
  9. ALBUTEROL [Suspect]
     Active Substance: ALBUTEROL
     Indication: Asthma
  10. EBASTINE [Suspect]
     Active Substance: EBASTINE
     Indication: Suicide attempt
     Dosage: UNK
     Route: 065
     Dates: start: 20210814, end: 20210814
  11. EBASTINE [Suspect]
     Active Substance: EBASTINE
     Indication: Allergy to animal
  12. PANTOPRAZOLE [Suspect]
     Active Substance: PANTOPRAZOLE
     Dosage: UNK
     Route: 065
     Dates: start: 20210814, end: 20210814
  13. PANTOPRAZOLE [Suspect]
     Active Substance: PANTOPRAZOLE
     Indication: Product used for unknown indication
  14. PANTOPRAZOLE [Suspect]
     Active Substance: PANTOPRAZOLE
     Indication: Suicide attempt
  15. PIROXICAM [Suspect]
     Active Substance: PIROXICAM
     Indication: Suicide attempt
     Dosage: UNK
     Route: 065
     Dates: start: 20210814, end: 20210814

REACTIONS (9)
  - Blood glucose increased [Recovering/Resolving]
  - Somnolence [Recovering/Resolving]
  - Drug abuse [Recovered/Resolved]
  - Infection [Recovered/Resolved]
  - Electrocardiogram ST segment elevation [Recovering/Resolving]
  - Chills [Recovering/Resolving]
  - Blood pressure decreased [Recovering/Resolving]
  - Suicide attempt [Unknown]
  - Hyperglycaemia [Recovering/Resolving]

NARRATIVE: CASE EVENT DATE: 20210814
